FAERS Safety Report 7588320-3 (Version None)
Quarter: 2011Q3

REPORT INFORMATION
  Report Type: 
  Country: None (occurrence: None)
  Receive Date: 20110705
  Receipt Date: 20090306
  Transmission Date: 20111222
  Serious: Yes (Hospitalization, Other)
  Sender: FDA-Public Use
  Company Number: US-BAYER-2011-008065

PATIENT
  Age: 64 Year
  Sex: Male
  Weight: 112 kg

DRUGS (21)
  1. LISINOPRIL [Concomitant]
     Indication: HYPERTENSION
     Dosage: 20 MG, ONCE
     Route: 048
     Dates: start: 19930101
  2. ACETYLSALICYLIC ACID SRT [Concomitant]
     Dosage: 5/325 MG
     Dates: start: 19980610
  3. HUMULIN M [INSULIN HUMAN] [Concomitant]
     Dosage: ACCORDING TO BLOOD SUGARS
     Route: 058
     Dates: start: 20020101
  4. ZETIA [Concomitant]
     Dosage: 10 MG, ONCE
     Route: 048
     Dates: start: 20040101
  5. VECURONIUM BROMIDE [Concomitant]
     Dosage: UNK
     Dates: start: 20060106
  6. AMICAR [Concomitant]
     Dosage: 50 ML PRIME
     Route: 042
  7. TRASYLOL [Suspect]
     Indication: CORONARY ARTERY BYPASS
     Dosage: 200 ML, PUMP PRIME, 50ML/HR INFUSION.
     Route: 042
     Dates: start: 20060106, end: 20060106
  8. TICLID [Concomitant]
     Dosage: FOR 2 WEEKS
  9. ANCEF [Concomitant]
     Dosage: 1 G, UNK
     Route: 042
     Dates: start: 20060106
  10. NITROGLYCERIN [Concomitant]
     Indication: PRODUCT USED FOR UNKNOWN INDICATION
     Dosage: UNK
     Dates: start: 19980608
  11. NITROGLYCERIN [Concomitant]
     Indication: CHEST PAIN
     Route: 060
  12. GLYBURIDE [Concomitant]
     Indication: DIABETES MELLITUS
     Dosage: 2.5
     Dates: start: 19980610
  13. PLATELETS [Concomitant]
     Dosage: 2 U, UNK
     Route: 042
     Dates: start: 20060106
  14. LOPRESSOR [Concomitant]
     Indication: BLOOD PRESSURE ABNORMAL
     Dosage: 25 MG, BID
     Dates: start: 19980610
  15. MILRINONE [Concomitant]
     Dosage: UNK
     Route: 042
     Dates: start: 20060106
  16. RED BLOOD CELLS [Concomitant]
     Dosage: 1 U, UNK
     Route: 042
     Dates: start: 20060106
  17. HEPARIN [Concomitant]
     Dosage: 10000 U, UNK
     Dates: start: 19980608
  18. HEPARIN [Concomitant]
     Dosage: 1000 U, Q1HR
     Dates: start: 19980608
  19. CITALOPRAM HYDROBROMIDE [Concomitant]
     Dosage: 20 MG, ONCE
     Route: 048
  20. METOPROLOL TARTRATE [Concomitant]
     Dosage: 100 MG, BID
     Route: 048
     Dates: start: 19930101
  21. MAXZIDE [Concomitant]
     Dosage: 25/37.5 DAILY
     Route: 048
     Dates: start: 19980101

REACTIONS (12)
  - MULTI-ORGAN FAILURE [None]
  - RENAL INJURY [None]
  - ANHEDONIA [None]
  - RENAL FAILURE [None]
  - ANXIETY [None]
  - PAIN [None]
  - INJURY [None]
  - RENAL IMPAIRMENT [None]
  - STRESS [None]
  - UNEVALUABLE EVENT [None]
  - EMOTIONAL DISTRESS [None]
  - FEAR [None]
